FAERS Safety Report 23810999 (Version 2)
Quarter: 2024Q2

REPORT INFORMATION
  Report Type: Spontaneous
  Country: US (occurrence: US)
  Receive Date: 20240502
  Receipt Date: 20240523
  Transmission Date: 20240715
  Serious: No
  Sender: FDA-Public Use
  Company Number: US-INCYTE CORPORATION-2024IN004523

PATIENT

DRUGS (4)
  1. JAKAFI [Suspect]
     Active Substance: RUXOLITINIB
     Indication: Acute lymphocytic leukaemia
     Dosage: 5 MILLIGRAM, BID
     Route: 048
     Dates: start: 202404
  2. JAKAFI [Suspect]
     Active Substance: RUXOLITINIB
     Indication: Thrombocytopenia
     Dosage: 5 MILLIGRAM, BID
     Route: 048
     Dates: start: 202404
  3. PROMACTA [Suspect]
     Active Substance: ELTROMBOPAG OLAMINE
     Indication: Acute lymphocytic leukaemia
     Dosage: 75 MILLIGRAM, QD
     Route: 048
     Dates: start: 202404
  4. PROMACTA [Suspect]
     Active Substance: ELTROMBOPAG OLAMINE
     Indication: Thrombocytopenia

REACTIONS (1)
  - Off label use [Unknown]

NARRATIVE: CASE EVENT DATE: 20240401
